FAERS Safety Report 10474605 (Version 1)
Quarter: 2014Q3

REPORT INFORMATION
  Report Type: Spontaneous
  Country: IT (occurrence: IT)
  Receive Date: 20140924
  Receipt Date: 20140924
  Transmission Date: 20150326
  Serious: Yes (Other)
  Sender: FDA-Public Use
  Company Number: PHHY2014IT121887

PATIENT
  Age: 37 Year
  Sex: Female

DRUGS (7)
  1. OMEPRAZOLE. [Concomitant]
     Active Substance: OMEPRAZOLE
  2. CACIT VITAMIN D3 [Concomitant]
     Active Substance: CALCIUM CARBONATE\CHOLECALCIFEROL
  3. FOLINA [Concomitant]
     Active Substance: FOLIC ACID
  4. METHOTREXATE [Suspect]
     Active Substance: METHOTREXATE
     Indication: RHEUMATOID ARTHRITIS
     Dosage: 10 MG, QW
     Route: 030
     Dates: start: 20030510
  5. MABTHERA [Suspect]
     Active Substance: RITUXIMAB
     Indication: RHEUMATOID ARTHRITIS
     Dosage: 2000 MG, UNK
     Route: 042
     Dates: start: 20070202
  6. DIBASE [Concomitant]
     Active Substance: CHOLECALCIFEROL
  7. CELEBREX [Concomitant]
     Active Substance: CELECOXIB

REACTIONS (2)
  - Uterine polyp [Recovering/Resolving]
  - Cervical dysplasia [Recovering/Resolving]

NARRATIVE: CASE EVENT DATE: 20140615
